FAERS Safety Report 8654227 (Version 3)
Quarter: 2012Q4

REPORT INFORMATION
  Report Type: Report from Study
  Country: ES (occurrence: ES)
  Receive Date: 20120709
  Receipt Date: 20121023
  Transmission Date: 20130627
  Serious: Yes (Other)
  Sender: FDA-Public Use
  Company Number: ES-ELI_LILLY_AND_COMPANY-ES201206009317

PATIENT
  Age: 67 Year
  Sex: Male
  Weight: 71 kg

DRUGS (10)
  1. NECITUMUMAB [Suspect]
     Indication: NON-SMALL CELL LUNG CANCER
     Dosage: 800 mg, other
     Route: 042
     Dates: start: 20120201, end: 20120606
  2. NECITUMUMAB [Suspect]
     Dosage: 800 mg, other
     Route: 042
     Dates: start: 20120704
  3. GEMCITABINE HYDROCHLORIDE [Suspect]
     Indication: NON-SMALL CELL LUNG CANCER
     Dosage: 2275 mg, other
     Route: 042
     Dates: start: 20120201
  4. CISPLATIN [Suspect]
     Indication: NON-SMALL CELL LUNG CANCER
     Dosage: 136 mg, other
     Route: 042
     Dates: start: 20120201
  5. FORTECORTIN                        /00016011/ [Concomitant]
     Dosage: 1 mg, qd
  6. PANTOPRAZOL [Concomitant]
     Dosage: 1 DF, qd
  7. ESCITALOPRAM [Concomitant]
     Dosage: 15 mg, qd
  8. ALPRAZOLAM [Concomitant]
     Dosage: 0.5 mg, bid
  9. SERETIDE [Concomitant]
     Dosage: 1 DF, qd, 50/250
  10. MIRTAZAPINE [Concomitant]
     Dosage: 30 mg, qd

REACTIONS (1)
  - Venous thrombosis limb [Recovered/Resolved]
